FAERS Safety Report 16826443 (Version 1)
Quarter: 2019Q3

REPORT INFORMATION
  Report Type: Spontaneous
  Country: GB (occurrence: GB)
  Receive Date: 20190919
  Receipt Date: 20190919
  Transmission Date: 20191005
  Serious: Yes (Hospitalization)
  Sender: FDA-Public Use
  Company Number: GB-PFIZER INC-2019400682

PATIENT
  Age: 52 Year
  Sex: Male

DRUGS (2)
  1. IBUPROFEN. [Suspect]
     Active Substance: IBUPROFEN
     Indication: EPICONDYLITIS
     Dosage: 800 MG, 1X/DAY (TAKEN REGULARLY FOR MONTHS)
  2. CODEINE [Concomitant]
     Active Substance: CODEINE
     Indication: GASTROINTESTINAL MOTILITY DISORDER
     Dosage: 30 MG, 1X/DAY
     Dates: start: 20181012

REACTIONS (1)
  - Upper gastrointestinal haemorrhage [Recovered/Resolved]
